FAERS Safety Report 9681061 (Version 2)
Quarter: 2013Q4

REPORT INFORMATION
  Report Type: Spontaneous
  Country: SE (occurrence: SE)
  Receive Date: 20131111
  Receipt Date: 20131231
  Transmission Date: 20140711
  Serious: Yes (Other)
  Sender: FDA-Public Use
  Company Number: PHHY2013SE127294

PATIENT
  Sex: 0

DRUGS (1)
  1. EXELON PATCH [Suspect]
     Dosage: UNK UKN, UNK
     Route: 062

REACTIONS (7)
  - Lymphoma [Unknown]
  - Splenomegaly [Unknown]
  - Hypersplenism [Unknown]
  - Thrombocytopenia [Unknown]
  - Bone marrow granuloma [Unknown]
  - Anaemia [Unknown]
  - Neutropenia [Unknown]
